FAERS Safety Report 4687320-0 (Version None)
Quarter: 2005Q2

REPORT INFORMATION
  Report Type: 
  Country: None (occurrence: None)
  Receive Date: 20050608
  Receipt Date: 20050524
  Transmission Date: 20051028
  Serious: Yes (Death)
  Sender: FDA-Public Use
  Company Number: USA-2005-0019683

PATIENT
  Age: 24 Year
  Sex: Male
  Weight: 85.7 kg

DRUGS (6)
  1. OXYCONTIN [Suspect]
  2. BENZODIAZEPINES [Suspect]
  3. METHANOL (METHANOL) [Suspect]
  4. ACETONE (ACETONE) [Suspect]
  5. ETHAOL (ETHANOL) [Suspect]
  6. ISOPROPANOL (ISOPROPANOL) [Concomitant]

REACTIONS (16)
  - ACCIDENT [None]
  - COMPLETED SUICIDE [None]
  - HEPATIC TRAUMA [None]
  - LACERATION [None]
  - LUNG INJURY [None]
  - PLEURAL HAEMORRHAGE [None]
  - POLYTRAUMATISM [None]
  - PULMONARY HAEMORRHAGE [None]
  - RENAL HAEMORRHAGE [None]
  - RENAL INJURY [None]
  - RIB FRACTURE [None]
  - SCROTAL ABSCESS [None]
  - SKULL FRACTURE [None]
  - SUBARACHNOID HAEMORRHAGE [None]
  - TOXICOLOGIC TEST ABNORMAL [None]
  - TRAUMATIC BRAIN INJURY [None]
